FAERS Safety Report 13496534 (Version 1)
Quarter: 2020Q3

REPORT INFORMATION
  Report Type: Spontaneous
  Country: US (occurrence: US)
  Receive Date: 20170428
  Receipt Date: 20170428
  Transmission Date: 20201104
  Serious: Yes (Hospitalization, Other)
  Sender: FDA-Public Use
  Company Number: PHEH2017US011831

PATIENT
  Sex: Male

DRUGS (4)
  1. ZYKADIA [Suspect]
     Active Substance: CERITINIB
     Indication: LUNG ADENOCARCINOMA STAGE IV
     Dosage: UNK
     Route: 065
     Dates: start: 201412, end: 201509
  2. CRIZOTINIB [Suspect]
     Active Substance: CRIZOTINIB
     Indication: LUNG ADENOCARCINOMA STAGE IV
     Dosage: UNK
     Route: 065
     Dates: start: 201406, end: 201412
  3. ZYKADIA [Suspect]
     Active Substance: CERITINIB
     Dosage: UNK
     Route: 065
     Dates: start: 201702, end: 201703
  4. ALECTINIB. [Suspect]
     Active Substance: ALECTINIB
     Indication: LUNG ADENOCARCINOMA STAGE IV
     Dosage: UNK
     Route: 065
     Dates: start: 201510, end: 20160311

REACTIONS (17)
  - Lung adenocarcinoma stage IV [Unknown]
  - Productive cough [Unknown]
  - Dyspnoea [Recovering/Resolving]
  - Cough [Unknown]
  - Nausea [Unknown]
  - Seizure [Unknown]
  - Malignant neoplasm progression [Unknown]
  - Pulmonary embolism [Recovering/Resolving]
  - Malaise [Unknown]
  - Headache [Unknown]
  - Hypoxia [Recovering/Resolving]
  - Asthenia [Recovering/Resolving]
  - Peripheral swelling [Unknown]
  - Haemoptysis [Unknown]
  - Diarrhoea [Unknown]
  - Constipation [Unknown]
  - Drug intolerance [Unknown]
